FAERS Safety Report 8028080 (Version 2)
Quarter: 2013Q2

REPORT INFORMATION
  Report Type: Spontaneous
  Country: US (occurrence: None)
  Receive Date: 20110527
  Receipt Date: 20130130
  Transmission Date: 20140414
  Serious: Yes (Hospitalization, Other)
  Sender: FDA-Public Use
  Company Number: US200901001583

PATIENT
  Age: 65 Year
  Sex: Female
  Weight: 94.3 kg

DRUGS (30)
  1. BYETTA [Suspect]
     Indication: TYPE 2 DIABETES MELLITUS
     Dosage: 5 UG, 2/D, SUBCUTANEOUS
     Route: 058
     Dates: start: 200705, end: 20070626
  2. EXENATIDE [Concomitant]
  3. SPIRONOLACTONE [Concomitant]
  4. METFORMIN HYDROCHLORIDE [Concomitant]
  5. LANTUS [Concomitant]
  6. LEVOXYL [Concomitant]
  7. POTASSIUM CHLORIDE [Concomitant]
  8. TRIAMTERENE AND HYDROCHLOROTHIAZID [Concomitant]
  9. CLONIDINE TRANSDERMAL SYSTEM [Concomitant]
  10. GEMFIBROZIL [Concomitant]
  11. LISINOPRIL (LISINOPRIL) [Concomitant]
  12. ATENOLOL (ATENOLOL) [Concomitant]
  13. PLAVIX [Concomitant]
  14. ASA (ACETYLSALICYLIC ACID) [Concomitant]
  15. FISH OIL (FISH OIL) [Concomitant]
  16. SELENIUM (SELENIUM) [Concomitant]
  17. CRESTOR [Concomitant]
  18. MIRALAX [Concomitant]
  19. TYLENOL [Concomitant]
  20. EPINEPHRINE [Concomitant]
  21. MULTIPLE VITAMINS [Concomitant]
  22. VITAMIN E (HERBAL OIL NOS) [Concomitant]
  23. ESTER C [Concomitant]
  24. VITAMIN B [Concomitant]
  25. CALCIUM CITRATE WITH VITAMIN D [Concomitant]
  26. FOLIC ACID [Concomitant]
  27. ZINC (ZINC) [Concomitant]
  28. SIMVASTATIN (SIMVASTATIN) [Concomitant]
  29. NITROSTAT (CLYCERYL TRINITRATE) [Concomitant]
  30. CINNAMON (CINNAMOMUM VERUM) [Concomitant]

REACTIONS (6)
  - WEIGHT DECREASED [None]
  - ALOPECIA [None]
  - OFF LABEL USE [None]
  - PANCREATITIS ACUTE [None]
  - Renal failure acute [None]
  - Pancreatitis [None]
